FAERS Safety Report 19867112 (Version 2)
Quarter: 2022Q4

REPORT INFORMATION
  Report Type: Spontaneous
  Country: US (occurrence: US)
  Receive Date: 20210922
  Receipt Date: 20221017
  Transmission Date: 20230113
  Serious: No
  Sender: FDA-Public Use
  Company Number: US-CELLTRION INC.-2020US033479

PATIENT

DRUGS (1)
  1. INFLECTRA [Suspect]
     Active Substance: INFLIXIMAB-DYYB
     Indication: Colitis ulcerative
     Dosage: DOSE ESCALATION TO 10 MG/KG EVERY WEEK
     Route: 065

REACTIONS (3)
  - Loss of therapeutic response [Unknown]
  - Overdose [Unknown]
  - Off label use [Unknown]
